FAERS Safety Report 8251295-8 (Version None)
Quarter: 2012Q2

REPORT INFORMATION
  Report Type: 
  Country: None (occurrence: None)
  Receive Date: 20120402
  Receipt Date: 20120321
  Transmission Date: 20120825
  Serious: Yes (Hospitalization)
  Sender: FDA-Public Use
  Company Number: GB-GLAXOSMITHKLINE-B0765733C

PATIENT
  Sex: Male

DRUGS (12)
  1. CYCLOPHOSPHAMIDE [Suspect]
     Indication: RICHTER'S SYNDROME
     Dosage: 1500MG CYCLIC
     Route: 042
     Dates: start: 20110930
  2. PREDNISOLONE [Suspect]
     Indication: RICHTER'S SYNDROME
     Dosage: 100MG CYCLIC
     Route: 048
     Dates: start: 20110930
  3. DOXORUBICIN HCL [Suspect]
     Indication: RICHTER'S SYNDROME
     Dosage: 100MG CYCLIC
     Route: 042
     Dates: start: 20110930
  4. ZOPICLONE [Concomitant]
     Indication: INSOMNIA
     Dosage: 7.5MG AS REQUIRED
     Route: 048
     Dates: start: 19980101
  5. ATENOLOL [Concomitant]
     Indication: HYPERTENSION
     Dosage: 100MG PER DAY
     Route: 048
     Dates: start: 20070201
  6. ALLOPURINOL [Concomitant]
     Indication: GOUT
     Dosage: 100MG PER DAY
     Route: 048
     Dates: start: 20080101
  7. VINCRISTINE [Suspect]
     Indication: RICHTER'S SYNDROME
     Dosage: 2MG CYCLIC
     Route: 042
     Dates: start: 20110930
  8. IPRATROPIUM INHALER [Concomitant]
     Indication: COUGH
     Dosage: 20MG FOUR TIMES PER DAY
     Dates: start: 20111206
  9. NITROGLYCERIN [Concomitant]
     Indication: PAIN
     Dosage: 400MCG AS REQUIRED
     Route: 060
     Dates: start: 20070301
  10. OFATUMUMAB [Suspect]
     Indication: RICHTER'S SYNDROME
     Dosage: 1000MG CYCLIC
     Route: 042
     Dates: start: 20111014
  11. ASPIRIN [Concomitant]
     Indication: HYPERTENSION
     Dosage: 75MG PER DAY
     Route: 048
     Dates: start: 20070201
  12. OMEPRAZOLE [Concomitant]
     Indication: GASTROOESOPHAGEAL REFLUX DISEASE
     Dosage: 20MG PER DAY
     Route: 048
     Dates: start: 20110930

REACTIONS (1)
  - FEBRILE NEUTROPENIA [None]
